FAERS Safety Report 25835330 (Version 2)
Quarter: 2025Q4

REPORT INFORMATION
  Report Type: Report from Study
  Country: US (occurrence: US)
  Receive Date: 20250923
  Receipt Date: 20251009
  Transmission Date: 20260119
  Serious: Yes (Other)
  Sender: ALEXION PHARMACEUTICALS
  Company Number: US-AstraZeneca-CH-00951492A

PATIENT
  Sex: Male
  Weight: 132.43 kg

DRUGS (1)
  1. SELUMETINIB [Suspect]
     Active Substance: SELUMETINIB
     Indication: Benign neoplasm
     Dosage: TAKING 25MG IN THE MORNING AND 50MG IN THE EVENING

REACTIONS (2)
  - Rectal haemorrhage [Unknown]
  - Haemorrhoids [Unknown]
